FAERS Safety Report 18445299 (Version 3)
Quarter: 2021Q1

REPORT INFORMATION
  Report Type: Spontaneous
  Country: US (occurrence: US)
  Receive Date: 20201030
  Receipt Date: 20210115
  Transmission Date: 20210419
  Serious: No
  Sender: FDA-Public Use
  Company Number: US-SUNOVION-2020SUN003059

PATIENT
  Sex: Female

DRUGS (5)
  1. LATUDA [Suspect]
     Active Substance: LURASIDONE HYDROCHLORIDE
     Indication: SCHIZOAFFECTIVE DISORDER
     Dosage: 40 MG, QD
     Route: 048
     Dates: start: 202010
  2. VALPROIC ACID. [Concomitant]
     Active Substance: VALPROIC ACID
     Dosage: UNK
  3. GEODON [Concomitant]
     Active Substance: ZIPRASIDONE HYDROCHLORIDE\ZIPRASIDONE MESYLATE
  4. ABILIFY [Concomitant]
     Active Substance: ARIPIPRAZOLE
  5. LOXAPINE. [Concomitant]
     Active Substance: LOXAPINE

REACTIONS (12)
  - Tachycardia [Recovered/Resolved]
  - Fatigue [Unknown]
  - Off label use [Unknown]
  - Therapeutic response unexpected [Unknown]
  - Nausea [Recovering/Resolving]
  - Restlessness [Unknown]
  - Soliloquy [Unknown]
  - Anger [Unknown]
  - Logorrhoea [Unknown]
  - Blood glucose increased [Unknown]
  - Abdominal pain upper [Recovering/Resolving]
  - Drug ineffective [Unknown]
